FAERS Safety Report 7322144-7 (Version None)
Quarter: 2011Q1

REPORT INFORMATION
  Report Type: 
  Country: None (occurrence: None)
  Receive Date: 20110228
  Receipt Date: 20110223
  Transmission Date: 20110831
  Serious: Yes (Other)
  Sender: FDA-Public Use
  Company Number: FR-GILEAD-2011-0036236

PATIENT
  Sex: Female
  Weight: 66 kg

DRUGS (12)
  1. KALETRA [Concomitant]
     Dates: start: 20010101, end: 20050101
  2. EPIVIR [Concomitant]
     Dates: start: 20050704, end: 20050831
  3. EPIVIR [Concomitant]
     Dates: start: 20050101, end: 20050101
  4. VIREAD [Suspect]
     Indication: HIV INFECTION
     Dates: start: 20050831
  5. VIREAD [Suspect]
     Dates: start: 20050704, end: 20050831
  6. VIREAD [Suspect]
     Dates: start: 20050101, end: 20050101
  7. TARDYFERON B9 [Concomitant]
  8. KALETRA [Concomitant]
     Dates: start: 20050831
  9. BACTRIM [Concomitant]
     Dates: start: 20050831
  10. EPIVIR [Concomitant]
     Dates: start: 20050831
  11. RIVOTRIL [Concomitant]
     Indication: SCIATICA
  12. AZT [Concomitant]

REACTIONS (5)
  - METABOLIC ACIDOSIS [None]
  - TWIN PREGNANCY [None]
  - CONVULSION [None]
  - PREMATURE LABOUR [None]
  - OLIGOHYDRAMNIOS [None]
